FAERS Safety Report 23795659 (Version 1)
Quarter: 2024Q2

REPORT INFORMATION
  Report Type: Spontaneous
  Country: AU (occurrence: AU)
  Receive Date: 20240429
  Receipt Date: 20240429
  Transmission Date: 20240715
  Serious: Yes (Hospitalization)
  Sender: FDA-Public Use
  Company Number: AU-002147023-NVSC2024AU088509

PATIENT
  Age: 70 Year
  Sex: Male

DRUGS (7)
  1. EVEROLIMUS [Suspect]
     Active Substance: EVEROLIMUS
     Indication: Renal cell carcinoma
     Dosage: 5 MG (INTERVAL OF ONE DAY)
     Route: 048
     Dates: start: 20171228, end: 20180221
  2. EVEROLIMUS [Suspect]
     Active Substance: EVEROLIMUS
     Dosage: 5 MG (INTERVAL OF TWO DAYS)
     Route: 048
     Dates: start: 20180308, end: 20180319
  3. LENVIMA [Suspect]
     Active Substance: LENVATINIB
     Indication: Renal cell carcinoma
     Dosage: 18 MG (INTERVAL OF ONE DAY)
     Route: 048
     Dates: start: 20171228, end: 20180221
  4. LENVIMA [Suspect]
     Active Substance: LENVATINIB
     Dosage: 18 MG (INTERVAL OF ONE DAY)
     Route: 048
     Dates: start: 20180308, end: 20180319
  5. AMLODIPINE [Concomitant]
     Active Substance: AMLODIPINE BESYLATE
     Indication: Product used for unknown indication
     Dosage: UNK
     Route: 065
  6. GLICLAZIDE [Concomitant]
     Active Substance: GLICLAZIDE
     Indication: Product used for unknown indication
     Dosage: UNK
     Route: 065
  7. ASPIRIN [Concomitant]
     Active Substance: ASPIRIN
     Indication: Product used for unknown indication
     Dosage: UNK
     Route: 065

REACTIONS (7)
  - Dermatitis acneiform [Recovered/Resolved]
  - Subdural haemorrhage [Recovered/Resolved]
  - Pneumonitis [Recovering/Resolving]
  - Dizziness [Unknown]
  - Fall [Unknown]
  - Head injury [Unknown]
  - Anaemia [Unknown]

NARRATIVE: CASE EVENT DATE: 20180219
